FAERS Safety Report 6853964-0 (Version None)
Quarter: 2010Q3

REPORT INFORMATION
  Report Type: 
  Country: None (occurrence: None)
  Receive Date: 20100717
  Receipt Date: 20071210
  Transmission Date: 20110219
  Serious: No
  Sender: FDA-Public Use
  Company Number: US-PFIZER INC-2007108853

PATIENT
  Age: 42 Year
  Sex: Female

DRUGS (3)
  1. CHANTIX [Suspect]
  2. ADVIL LIQUI-GELS [Concomitant]
  3. VALIUM [Concomitant]

REACTIONS (3)
  - CHILLS [None]
  - DIARRHOEA [None]
  - NAUSEA [None]
